FAERS Safety Report 8338892-6 (Version None)
Quarter: 2012Q2

REPORT INFORMATION
  Report Type: 
  Country: None (occurrence: None)
  Receive Date: 20120506
  Receipt Date: 20111206
  Transmission Date: 20120825
  Serious: Yes (Death)
  Sender: FDA-Public Use
  Company Number: PHEH2011US013156

PATIENT
  Sex: Female

DRUGS (3)
  1. RAPAMUNE [Concomitant]
  2. MYFORTIC [Suspect]
     Dosage: 720 MG, BID
     Route: 048
     Dates: start: 20111206, end: 20111206
  3. VALCYTE [Concomitant]

REACTIONS (1)
  - DEATH [None]
